FAERS Safety Report 19763147 (Version 2)
Quarter: 2021Q3

REPORT INFORMATION
  Report Type: Spontaneous
  Country: GB (occurrence: GB)
  Receive Date: 20210830
  Receipt Date: 20210902
  Transmission Date: 20211014
  Serious: Yes (Hospitalization, Other)
  Sender: FDA-Public Use
  Company Number: GB-PFIZER INC-202101074364

PATIENT
  Age: 8 Decade
  Sex: Male

DRUGS (2)
  1. CLOBAZAM. [Concomitant]
     Active Substance: CLOBAZAM
     Indication: GENERALISED TONIC-CLONIC SEIZURE
     Dosage: 10 MG, 1X/DAY(NOCTE)
  2. LEVETIRACETAM. [Suspect]
     Active Substance: LEVETIRACETAM
     Indication: GENERALISED TONIC-CLONIC SEIZURE
     Dosage: 1 G, 2X/DAY(FREQ:12 H)

REACTIONS (3)
  - Paranoia [Not Recovered/Not Resolved]
  - Agitation [Not Recovered/Not Resolved]
  - Psychiatric symptom [Not Recovered/Not Resolved]
